FAERS Safety Report 10094180 (Version 9)
Quarter: 2016Q3

REPORT INFORMATION
  Report Type: Report from Study
  Country: CA (occurrence: CA)
  Receive Date: 20140422
  Receipt Date: 20160902
  Transmission Date: 20161108
  Serious: Yes (Life-Threatening, Hospitalization, Other)
  Sender: FDA-Public Use
  Company Number: CA-ROCHE-1198539

PATIENT
  Age: 28 Year
  Sex: Female
  Weight: 60 kg

DRUGS (12)
  1. IVIG [Concomitant]
     Active Substance: HUMAN IMMUNOGLOBULIN G
  2. ACTEMRA [Suspect]
     Active Substance: TOCILIZUMAB
     Route: 042
     Dates: start: 20110602
  3. TYLENOL [Concomitant]
     Active Substance: ACETAMINOPHEN
  4. FOSAMAX [Concomitant]
     Active Substance: ALENDRONATE SODIUM
  5. FOLIC ACID. [Concomitant]
     Active Substance: FOLIC ACID
  6. ACTEMRA [Suspect]
     Active Substance: TOCILIZUMAB
     Indication: JUVENILE IDIOPATHIC ARTHRITIS
     Dosage: 8 MG/KG
     Route: 042
     Dates: start: 20110112
  7. METHOTREXATE. [Suspect]
     Active Substance: METHOTREXATE
     Indication: PRODUCT USED FOR UNKNOWN INDICATION
     Route: 065
  8. NAPROXEN. [Concomitant]
     Active Substance: NAPROXEN
  9. RITUXAN [Suspect]
     Active Substance: RITUXIMAB
     Indication: JUVENILE IDIOPATHIC ARTHRITIS
     Dosage: MOST RECENT DOSE OF INFUSION WAS RECEIVED ON 02/MAY/2013
     Route: 042
     Dates: start: 20130418
  10. PREDNISONE. [Concomitant]
     Active Substance: PREDNISONE
  11. ANAKINRA [Concomitant]
     Active Substance: ANAKINRA
  12. ACTEMRA [Suspect]
     Active Substance: TOCILIZUMAB
     Route: 042
     Dates: start: 20110630, end: 20130305

REACTIONS (14)
  - Weight increased [Not Recovered/Not Resolved]
  - Weight decreased [Unknown]
  - Arthropathy [Recovered/Resolved]
  - Organ failure [Unknown]
  - Histiocytosis haematophagic [Recovering/Resolving]
  - Heart rate increased [Unknown]
  - Herpes zoster [Not Recovered/Not Resolved]
  - Nasopharyngitis [Recovering/Resolving]
  - Knee arthroplasty [Unknown]
  - Arthritis infective [Not Recovered/Not Resolved]
  - Sepsis syndrome [Recovering/Resolving]
  - Drug ineffective [Unknown]
  - Fall [Unknown]
  - Hypotension [Unknown]

NARRATIVE: CASE EVENT DATE: 20130222
